FAERS Safety Report 18850212 (Version 1)
Quarter: 2021Q1

REPORT INFORMATION
  Report Type: Spontaneous
  Country: US (occurrence: US)
  Receive Date: 20210205
  Receipt Date: 20210205
  Transmission Date: 20210420
  Serious: No
  Sender: FDA-Public Use
  Company Number: US-TEVA-2021-US-1867827

PATIENT
  Age: 16 Year
  Sex: Male

DRUGS (2)
  1. AUSTEDO [Suspect]
     Active Substance: DEUTETRABENAZINE
     Indication: TARDIVE DYSKINESIA
     Dosage: 12 MILLIGRAM DAILY;
     Route: 048
     Dates: start: 20190405
  2. ALEVE [Concomitant]
     Active Substance: NAPROXEN SODIUM

REACTIONS (3)
  - Product use issue [Unknown]
  - Dyskinesia [Unknown]
  - Inappropriate schedule of product administration [Unknown]

NARRATIVE: CASE EVENT DATE: 2019
